FAERS Safety Report 6248872-2 (Version None)
Quarter: 2009Q2

REPORT INFORMATION
  Report Type: 
  Country: None (occurrence: None)
  Receive Date: 20090629
  Receipt Date: 20090619
  Transmission Date: 20091009
  Serious: Yes (Hospitalization)
  Sender: FDA-Public Use
  Company Number: PHHO2007DE19548

PATIENT
  Sex: Male

DRUGS (16)
  1. NEORAL [Suspect]
     Indication: RENAL TRANSPLANT
     Dosage: 80 MG / DAY
     Route: 048
     Dates: start: 20031216
  2. NEORAL [Suspect]
     Dosage: 160 MG / DAY
     Route: 048
     Dates: start: 20041109, end: 20050119
  3. NEORAL [Suspect]
     Dosage: 160MG/ DAY
     Route: 042
     Dates: start: 20050120, end: 20050120
  4. NEORAL [Suspect]
     Dosage: 160MG/ DAY
     Route: 048
     Dates: start: 20050121
  5. MYCOPHENOLATE MOFETIL [Suspect]
     Indication: RENAL TRANSPLANT
     Dosage: 1000 MG / DAY
     Route: 048
     Dates: start: 20041109
  6. MYCOPHENOLATE MOFETIL [Suspect]
     Dosage: 1000 MG, BID
     Route: 048
     Dates: start: 20041110
  7. PREDNISOLONE [Suspect]
     Indication: RENAL TRANSPLANT
     Dosage: 5 MG / DAY
     Route: 042
     Dates: start: 20040202
  8. PREDNISOLONE [Suspect]
     Dosage: 100 MG
     Route: 042
     Dates: start: 20041109
  9. AMPHOTERICIN B [Concomitant]
  10. CEFUROXIME [Concomitant]
  11. DILTIAZEM [Concomitant]
  12. FUROSEMID [Concomitant]
  13. METOPROLOL SUCCINATE [Concomitant]
  14. URAPIDIL [Concomitant]
  15. RAMIPRIL [Concomitant]
  16. ACETYLCYSTEINE [Concomitant]

REACTIONS (6)
  - URETERAL STENT INSERTION [None]
  - URETERAL STENT REMOVAL [None]
  - URETERIC DILATATION [None]
  - URETERIC OBSTRUCTION [None]
  - URETERIC STENOSIS [None]
  - URINARY TRACT INFECTION [None]
